FAERS Safety Report 7198254-4 (Version None)
Quarter: 2010Q4

REPORT INFORMATION
  Report Type: 
  Country: None (occurrence: None)
  Receive Date: 20101227
  Receipt Date: 20101213
  Transmission Date: 20110411
  Serious: Yes (Other)
  Sender: FDA-Public Use
  Company Number: PHHY2010US84489

PATIENT
  Sex: Female

DRUGS (2)
  1. RECLAST [Suspect]
     Dosage: UNK
     Dates: start: 20101001
  2. CORTISONE [Concomitant]

REACTIONS (5)
  - CRYING [None]
  - DEPRESSION [None]
  - DYSSTASIA [None]
  - GAIT DISTURBANCE [None]
  - PAIN [None]
